FAERS Safety Report 4487116-9 (Version None)
Quarter: 2004Q4

REPORT INFORMATION
  Report Type: 
  Country: None (occurrence: None)
  Receive Date: 20041027
  Receipt Date: 20041025
  Transmission Date: 20050328
  Serious: Yes (Hospitalization)
  Sender: FDA-Public Use
  Company Number: DE-GLAXOSMITHKLINE-D0045037A

PATIENT
  Age: 48 Year
  Sex: Male

DRUGS (5)
  1. QUILONUM RETARD [Suspect]
     Dosage: 1150MG PER DAY
     Route: 048
     Dates: start: 19990101, end: 20030320
  2. CLOZAPINE [Concomitant]
     Dosage: 75MG PER DAY
     Route: 048
     Dates: start: 19990101, end: 20030227
  3. SEROXAT [Concomitant]
     Dosage: 40MG PER DAY
     Route: 048
     Dates: start: 19990101
  4. LAMICTAL [Concomitant]
     Route: 065
     Dates: start: 20030101
  5. ZELDOX [Concomitant]
     Route: 065
     Dates: start: 20030101

REACTIONS (2)
  - DRUG INTERACTION [None]
  - WEIGHT INCREASED [None]
